FAERS Safety Report 5889969-6 (Version None)
Quarter: 2008Q3

REPORT INFORMATION
  Report Type: 
  Country: None (occurrence: None)
  Receive Date: 20080919
  Receipt Date: 20080909
  Transmission Date: 20090109
  Serious: Yes (Other)
  Sender: FDA-Public Use
  Company Number: CN-PFIZER INC-2008077067

PATIENT
  Age: 27 Year
  Sex: Female

DRUGS (1)
  1. VIAGRA [Suspect]
     Indication: ENDOMETRIAL DYSPLASIA
     Route: 048
     Dates: start: 20080101, end: 20080101

REACTIONS (1)
  - ABORTION SPONTANEOUS [None]
